FAERS Safety Report 8428335-6 (Version None)
Quarter: 2012Q2

REPORT INFORMATION
  Report Type: 
  Country: None (occurrence: None)
  Receive Date: 20120612
  Receipt Date: 20120528
  Transmission Date: 20120825
  Serious: Yes (Other)
  Sender: FDA-Public Use
  Company Number: US-ACCORD-013674

PATIENT
  Age: 18 Year
  Sex: Male

DRUGS (3)
  1. TACROLIMUS [Suspect]
     Indication: IMMUNOSUPPRESSION
     Route: 048
  2. CYCLOPHOSPHAMIDE [Suspect]
     Indication: IMMUNOSUPPRESSION
  3. ORTHOCLONE OKT3 [Concomitant]
     Indication: IMMUNOSUPPRESSION

REACTIONS (1)
  - T-CELL TYPE ACUTE LEUKAEMIA [None]
